FAERS Safety Report 7610062-6 (Version None)
Quarter: 2011Q3

REPORT INFORMATION
  Report Type: 
  Country: None (occurrence: None)
  Receive Date: 20110715
  Receipt Date: 20110708
  Transmission Date: 20111222
  Serious: Yes (Death, Hospitalization)
  Sender: FDA-Public Use
  Company Number: DE-AMGEN-DEUSP2011033386

PATIENT
  Age: 71 Year
  Sex: Female
  Weight: 74 kg

DRUGS (2)
  1. ENBREL [Suspect]
     Indication: RHEUMATOID ARTHRITIS
     Dosage: 25 MG, WEEKLY
     Route: 058
     Dates: start: 20090713, end: 20110601
  2. DICLOFENAC [Concomitant]
     Dosage: UNK

REACTIONS (3)
  - MULTI-ORGAN FAILURE [None]
  - INTESTINAL PERFORATION [None]
  - SEPTIC SHOCK [None]
